FAERS Safety Report 7361672-5 (Version None)
Quarter: 2011Q1

REPORT INFORMATION
  Report Type: 
  Country: None (occurrence: None)
  Receive Date: 20110318
  Receipt Date: 20110308
  Transmission Date: 20110831
  Serious: Yes (Other)
  Sender: FDA-Public Use
  Company Number: US-JNJFOC-20110304604

PATIENT
  Sex: Female
  Weight: 68.04 kg

DRUGS (2)
  1. FENTANYL CITRATE [Suspect]
     Indication: PAIN
     Route: 062
  2. ULTRAM [Suspect]
     Indication: PAIN
     Dosage: 3 TIMES A DAY
     Route: 048

REACTIONS (5)
  - CARDIAC DISORDER [None]
  - MALAISE [None]
  - AMNESIA [None]
  - DRUG INEFFECTIVE [None]
  - EXTRASYSTOLES [None]
